FAERS Safety Report 8384819-0 (Version None)
Quarter: 2012Q2

REPORT INFORMATION
  Report Type: 
  Country: None (occurrence: None)
  Receive Date: 20120524
  Receipt Date: 20120517
  Transmission Date: 20120825
  Serious: Yes (Hospitalization)
  Sender: FDA-Public Use
  Company Number: JP-CUBIST-2012S1000323

PATIENT
  Age: 39 Year
  Sex: Female
  Weight: 97 kg

DRUGS (11)
  1. KENALOG [Concomitant]
     Indication: STOMATITIS
     Dosage: DOSE UNIT:U
     Route: 061
     Dates: start: 20120320
  2. LOXOPROFEN [Concomitant]
     Indication: ANALGESIC THERAPY
     Route: 048
     Dates: start: 20120227
  3. ALL OTHER THERAPEUTIC PRODUCTS [Concomitant]
     Indication: CONSTIPATION
     Route: 048
     Dates: start: 20120320
  4. HEPARIN [Concomitant]
     Indication: DRY SKIN
     Dosage: DOSE UNIT:U
     Route: 061
     Dates: start: 20120318
  5. PREDNISOLONE [Concomitant]
     Indication: ERYTHEMA
     Dosage: DOSE UNIT:U
     Route: 061
     Dates: start: 20120320
  6. MUCOSTA [Concomitant]
     Indication: GASTRITIS
     Route: 048
     Dates: start: 20120227
  7. AMLODIPINE BESYLATE [Concomitant]
     Indication: HYPERTENSION
     Route: 048
     Dates: end: 20120317
  8. DICLOFENAC SODIUM [Concomitant]
     Indication: PYREXIA
     Route: 054
     Dates: start: 20120325, end: 20120326
  9. CUBICIN [Suspect]
     Indication: STAPHYLOCOCCAL OSTEOMYELITIS
     Route: 041
     Dates: start: 20120315, end: 20120326
  10. AMLODIPINE [Concomitant]
     Indication: HYPERTENSION
     Route: 048
     Dates: start: 20120318
  11. PREDNISOLONE [Concomitant]
     Indication: ECZEMA
     Dosage: DOSE UNIT:U
     Route: 061
     Dates: start: 20120320

REACTIONS (8)
  - WHITE BLOOD CELL COUNT DECREASED [None]
  - PLATELET COUNT DECREASED [None]
  - ECZEMA [None]
  - ERYTHEMA [None]
  - LIVER DISORDER [None]
  - PYREXIA [None]
  - NEUTROPHIL COUNT DECREASED [None]
  - STOMATITIS [None]
